FAERS Safety Report 6782175-2 (Version None)
Quarter: 2010Q2

REPORT INFORMATION
  Report Type: 
  Country: None (occurrence: None)
  Receive Date: 20100618
  Receipt Date: 20100618
  Transmission Date: 20101027
  Serious: Yes (Hospitalization)
  Sender: FDA-Public Use
  Company Number: None

PATIENT
  Sex: Male
  Weight: 70.1 kg

DRUGS (1)
  1. ERBITUX [Suspect]
     Dosage: 2400 MG
     Dates: end: 20100524

REACTIONS (1)
  - DYSPHAGIA [None]
